FAERS Safety Report 4843036-9 (Version None)
Quarter: 2005Q4

REPORT INFORMATION
  Report Type: 
  Country: None (occurrence: None)
  Receive Date: 20051130
  Receipt Date: 20051117
  Transmission Date: 20060501
  Serious: Yes (Hospitalization)
  Sender: FDA-Public Use
  Company Number: 2005RR-01216

PATIENT
  Age: 40 Year
  Sex: Female

DRUGS (1)
  1. OFLOXACIN [Suspect]
     Indication: DIARRHOEA HAEMORRHAGIC
     Dosage: 400 MG, QD,

REACTIONS (3)
  - ABDOMINAL PAIN LOWER [None]
  - ACUTE FEBRILE NEUTROPHILIC DERMATOSIS [None]
  - CROHN'S DISEASE [None]
